FAERS Safety Report 19930344 (Version 9)
Quarter: 2022Q1

REPORT INFORMATION
  Report Type: Report from Study
  Country: US (occurrence: US)
  Receive Date: 20211008
  Receipt Date: 20220307
  Transmission Date: 20220423
  Serious: Yes (Other)
  Sender: FDA-Public Use
  Company Number: NVSC2021US229957

PATIENT
  Sex: Male

DRUGS (4)
  1. ENTRESTO [Suspect]
     Active Substance: SACUBITRIL\VALSARTAN
     Indication: Product used for unknown indication
     Dosage: 50 MG, BID (24/26 MG)
     Route: 048
     Dates: start: 2019
  2. ENTRESTO [Suspect]
     Active Substance: SACUBITRIL\VALSARTAN
     Dosage: 50 MG, BID (24/26 MG)
     Route: 048
  3. ENTRESTO [Suspect]
     Active Substance: SACUBITRIL\VALSARTAN
     Dosage: UNK
     Route: 048
  4. ENTRESTO [Suspect]
     Active Substance: SACUBITRIL\VALSARTAN
     Dosage: 100 MG, BID (49/51 MG)
     Route: 048
     Dates: start: 202201

REACTIONS (14)
  - Eye haemorrhage [Unknown]
  - Arthritis [Unknown]
  - Visual impairment [Unknown]
  - Nasopharyngitis [Unknown]
  - Brain natriuretic peptide abnormal [Unknown]
  - Dyspnoea [Unknown]
  - Lymphadenopathy [Unknown]
  - Bronchitis [Unknown]
  - Joint swelling [Unknown]
  - Thought blocking [Unknown]
  - Memory impairment [Unknown]
  - Sinus disorder [Unknown]
  - Throat clearing [Unknown]
  - Cough [Unknown]

NARRATIVE: CASE EVENT DATE: 20210101
